FAERS Safety Report 14965069 (Version 2)
Quarter: 2018Q2

REPORT INFORMATION
  Report Type: Report from Study
  Country: NL (occurrence: NL)
  Receive Date: 20180601
  Receipt Date: 20180606
  Transmission Date: 20180711
  Serious: Yes (Hospitalization)
  Sender: FDA-Public Use
  Company Number: NL-PFIZER INC-2018218178

PATIENT
  Age: 19 Year
  Sex: Male
  Weight: 56 kg

DRUGS (2)
  1. CYCLOPHOSPHAMIDE. [Suspect]
     Active Substance: CYCLOPHOSPHAMIDE
     Dosage: NO DOSE GIVEN
  2. SIROLIMUS. [Suspect]
     Active Substance: SIROLIMUS
     Dosage: NO DOSE GIVEN

REACTIONS (2)
  - Pneumothorax [Recovering/Resolving]
  - Pneumonia [Recovering/Resolving]

NARRATIVE: CASE EVENT DATE: 20180517
